FAERS Safety Report 8222377-1 (Version None)
Quarter: 2012Q1

REPORT INFORMATION
  Report Type: 
  Country: None (occurrence: None)
  Receive Date: 20120320
  Receipt Date: 20120316
  Transmission Date: 20120608
  Serious: Yes (Hospitalization)
  Sender: FDA-Public Use
  Company Number: US-B.I. PHARMACEUTICALS,INC./RIDGEFIELD-2012-BP-02801BP

PATIENT
  Age: 83 Year
  Sex: Male

DRUGS (6)
  1. DILTIAZEM HCL [Concomitant]
     Indication: ATRIAL FIBRILLATION
  2. LOSARTAN POTASSIUM [Concomitant]
     Indication: CARDIAC FAILURE CONGESTIVE
  3. LOSARTAN POTASSIUM [Concomitant]
     Indication: HYPERTENSION
  4. METOPROLOL XL 50 [Concomitant]
     Indication: CARDIAC FAILURE CONGESTIVE
  5. PRADAXA [Suspect]
     Indication: ATRIAL FIBRILLATION
     Dosage: 300 MG
     Route: 048
     Dates: start: 20110101, end: 20120207
  6. FUROSEMIDE [Concomitant]
     Indication: CARDIAC FAILURE CONGESTIVE

REACTIONS (1)
  - PORTAL VEIN THROMBOSIS [None]
